FAERS Safety Report 6467117-1 (Version None)
Quarter: 2009Q4

REPORT INFORMATION
  Report Type: 
  Country: None (occurrence: None)
  Receive Date: 20091202
  Receipt Date: 20091201
  Transmission Date: 20100525
  Serious: Yes (Hospitalization)
  Sender: FDA-Public Use
  Company Number: US-PFIZER INC-2009275059

PATIENT
  Sex: Female

DRUGS (7)
  1. DILANTIN [Suspect]
     Indication: CONVULSION
     Dosage: 30 MG, 2 TABS AT 2 PM, 2 TABS AT 10 PM
     Route: 048
     Dates: start: 20090201, end: 20090425
  2. FENTANYL [Suspect]
     Indication: BACK PAIN
     Dosage: 1 PATCH Q 72 HOURS, TRANSDERMAL
     Route: 062
     Dates: start: 20090910
  3. FENTANYL [Suspect]
     Dosage: 1 PATCH, Q 72 HOURS
     Route: 062
     Dates: start: 20090305, end: 20090909
  4. BACLOFEN [Suspect]
     Indication: DRUG USE FOR UNKNOWN INDICATION
     Dosage: 10 MG, TABS, 1/2 TABS IN AM, 1/2 TAB WITH LUNCH, 1/2 TAB WITH SUPPER, 1/2 TAB AT NIGHT
     Route: 048
     Dates: start: 20090806
  5. BACLOFEN [Suspect]
     Dosage: 20 MG, DAILY
     Route: 048
     Dates: start: 20060101, end: 20090805
  6. KEPPRA [Suspect]
     Indication: CONVULSION
     Dosage: 250 MG, UNK
     Route: 048
     Dates: start: 20090201, end: 20090425
  7. LAMICTAL [Suspect]
     Indication: CONVULSION
     Dosage: 100 MG, 2X/DAY
     Route: 048
     Dates: start: 20090201

REACTIONS (9)
  - BLOOD ELECTROLYTES DECREASED [None]
  - CONFUSIONAL STATE [None]
  - CONVULSION [None]
  - DRUG TOXICITY [None]
  - HEADACHE [None]
  - HYPERHIDROSIS [None]
  - LOSS OF CONSCIOUSNESS [None]
  - URINARY TRACT INFECTION [None]
  - VENTRICULAR TACHYCARDIA [None]
